FAERS Safety Report 7877746-6 (Version None)
Quarter: 2011Q4

REPORT INFORMATION
  Report Type: 
  Country: None (occurrence: None)
  Receive Date: 20111031
  Receipt Date: 20111031
  Transmission Date: 20120403
  Serious: Yes (Other)
  Sender: FDA-Public Use
  Company Number: None

PATIENT
  Sex: Female

DRUGS (1)
  1. SIMVASTATIN [Suspect]
     Dosage: ONE TABLET DAILY
     Route: 048
     Dates: start: 20080916, end: 20110904

REACTIONS (5)
  - CARDIAC FAILURE CONGESTIVE [None]
  - SENSORY LOSS [None]
  - CONFUSIONAL STATE [None]
  - RENAL IMPAIRMENT [None]
  - OEDEMA PERIPHERAL [None]
